FAERS Safety Report 5565392-9 (Version None)
Quarter: 2007Q4

REPORT INFORMATION
  Report Type: 
  Country: None (occurrence: None)
  Receive Date: 20071218
  Receipt Date: 20071206
  Transmission Date: 20080405
  Serious: Yes (Hospitalization)
  Sender: FDA-Public Use
  Company Number: US-ELI_LILLY_AND_COMPANY-US200712001320

PATIENT
  Sex: Male

DRUGS (16)
  1. CYMBALTA [Suspect]
     Indication: DEPRESSION
     Dosage: 60 MG, UNK
     Dates: start: 20071001, end: 20071113
  2. NAMENDA [Concomitant]
     Indication: MEMORY IMPAIRMENT
     Dosage: 10 MG, 2/D
  3. FUROSEMIDE [Concomitant]
     Dosage: 20 MG, 2/D
  4. CHEMOTHERAPEUTICS NOS [Concomitant]
     Indication: PROSTATE CANCER
  5. POTASSIUM CHLORIDE [Concomitant]
  6. VITAMIN E [Concomitant]
     Indication: HEPATIC STEATOSIS
  7. ASPIRIN [Concomitant]
     Indication: CARDIAC DISORDER
  8. ARICEPT [Concomitant]
     Indication: MEMORY IMPAIRMENT
     Dosage: 10 MG, UNK
  9. METFORMIN HCL [Concomitant]
     Indication: DIABETES MELLITUS
     Dosage: 1000 MG, UNK
  10. GLIPIZIDE [Concomitant]
     Indication: DIABETES MELLITUS
     Dosage: 5 MG, 2/D
  11. AVAPRO [Concomitant]
     Dosage: 150 MG, DAILY (1/D)
  12. COREG [Concomitant]
     Dosage: 6.25 MG, UNK
  13. PAXIL [Concomitant]
     Indication: DEPRESSION
     Dosage: 40 MG, 2/D
  14. ALPRAZOLAM [Concomitant]
  15. ATIVAN [Concomitant]
     Indication: ANXIETY
     Dosage: 0.5 MG, 3/D
  16. METOLAZONE [Concomitant]
     Dosage: 5 MG, DAILY (1/D)

REACTIONS (9)
  - ABNORMAL BEHAVIOUR [None]
  - ANGER [None]
  - ANXIETY [None]
  - DEPRESSION [None]
  - INSOMNIA [None]
  - IRRITABILITY [None]
  - PANIC ATTACK [None]
  - RESTLESSNESS [None]
  - SPEECH DISORDER [None]
